FAERS Safety Report 16634675 (Version 2)
Quarter: 2019Q3

REPORT INFORMATION
  Report Type: Spontaneous
  Country: BG (occurrence: BG)
  Receive Date: 20190726
  Receipt Date: 20190809
  Transmission Date: 20191004
  Serious: Yes (Death, Hospitalization)
  Sender: FDA-Public Use
  Company Number: BG-ACCORD-148942

PATIENT
  Age: 59 Year
  Sex: Male

DRUGS (1)
  1. METHOTREXATE ACCORD [Suspect]
     Active Substance: METHOTREXATE
     Indication: SKIN LESION
     Dosage: STRENGTH: 100 MG/ML?AMPULE

REACTIONS (5)
  - Circulatory collapse [Fatal]
  - Aplastic anaemia [Fatal]
  - Haemorrhagic diathesis [Fatal]
  - Sepsis [Fatal]
  - Aphthous ulcer [Fatal]
